FAERS Safety Report 8918976 (Version 3)
Quarter: 2013Q2

REPORT INFORMATION
  Report Type: Spontaneous
  Country: US (occurrence: US)
  Receive Date: 20121121
  Receipt Date: 20130507
  Transmission Date: 20140414
  Serious: No
  Sender: FDA-Public Use
  Company Number: US-ASTRAZENECA-2012SE23175

PATIENT
  Age: 46 Year
  Sex: Female

DRUGS (1)
  1. NEXIUM [Suspect]
     Route: 048

REACTIONS (5)
  - Chest pain [Unknown]
  - Chest discomfort [Unknown]
  - Dyspepsia [Unknown]
  - Cardiac disorder [Unknown]
  - Intentional drug misuse [Unknown]
